FAERS Safety Report 5023069-2 (Version None)
Quarter: 2006Q2

REPORT INFORMATION
  Report Type: 
  Country: None (occurrence: None)
  Receive Date: 20060502
  Receipt Date: 20050523
  Transmission Date: 20061013
  Serious: Yes (Other)
  Sender: FDA-Public Use
  Company Number: PHEH2005US03433

PATIENT
  Age: 67 Year
  Sex: Male
  Weight: 82.1 kg

DRUGS (10)
  1. LOTREL [Suspect]
     Indication: HYPERTENSION
     Dosage: 5 MG AMLOD/20MG BENZA QD, ORAL
     Route: 048
     Dates: start: 20011114, end: 20050321
  2. LASIX [Concomitant]
  3. DIGOXIN [Concomitant]
  4. ASPIRIN [Concomitant]
  5. AVANDIA [Concomitant]
  6. VICODIN ES (HYDROCDONE BITRARTRATE, PARAETAMOL) [Concomitant]
  7. LIPITOR [Concomitant]
  8. NOVOLIN N [Concomitant]
  9. PLETAL (CILOSTAZOL) [Concomitant]
  10. VIAGRA [Concomitant]

REACTIONS (3)
  - LOCAL SWELLING [None]
  - PHARYNGOLARYNGEAL PAIN [None]
  - SWOLLEN TONGUE [None]
